FAERS Safety Report 5315656-9 (Version None)
Quarter: 2007Q2

REPORT INFORMATION
  Report Type: 
  Country: None (occurrence: None)
  Receive Date: 20070430
  Receipt Date: 20070430
  Transmission Date: 20071010
  Serious: Yes (Other)
  Sender: FDA-Public Use
  Company Number: None

PATIENT
  Sex: Female
  Weight: 78.9259 kg

DRUGS (1)
  1. SEROQUEL [Suspect]
     Indication: BIPOLAR DISORDER
     Dosage: 400 MG.  ONCE DAILY  PO
     Route: 048
     Dates: start: 19980401, end: 20070429

REACTIONS (2)
  - CONVULSION [None]
  - WEIGHT INCREASED [None]
